FAERS Safety Report 10018254 (Version 1)
Quarter: 2014Q1

REPORT INFORMATION
  Report Type: Spontaneous
  Country: US (occurrence: US)
  Receive Date: 20140318
  Receipt Date: 20140318
  Transmission Date: 20141002
  Serious: Yes (Other)
  Sender: FDA-Public Use
  Company Number: US-BRISTOL-MYERS SQUIBB COMPANY-19670124

PATIENT
  Sex: 0

DRUGS (4)
  1. ERBITUX [Suspect]
  2. IRINOTECAN [Suspect]
  3. 5-FLUOROURACIL [Suspect]
  4. FOLINIC ACID [Suspect]

REACTIONS (1)
  - Infusion related reaction [Unknown]
